FAERS Safety Report 20615368 (Version 2)
Quarter: 2022Q1

REPORT INFORMATION
  Report Type: Spontaneous
  Country: US (occurrence: US)
  Receive Date: 20220321
  Receipt Date: 20220328
  Transmission Date: 20220423
  Serious: Yes (Other)
  Sender: FDA-Public Use
  Company Number: US-AUROBINDO-AUR-APL-2022-008817

PATIENT
  Age: 19 Year
  Sex: Male

DRUGS (18)
  1. FLUCONAZOLE [Suspect]
     Active Substance: FLUCONAZOLE
     Indication: Precursor T-lymphoblastic lymphoma/leukaemia stage III
     Dosage: UNK
     Route: 065
  2. CYCLOPHOSPHAMIDE [Suspect]
     Active Substance: CYCLOPHOSPHAMIDE
     Indication: Non-Hodgkin^s lymphoma
  3. MERCAPTOPURINE [Suspect]
     Active Substance: MERCAPTOPURINE
     Indication: Precursor T-lymphoblastic lymphoma/leukaemia stage III
     Dosage: 60 MILLIGRAM/SQ. METER
     Route: 042
  4. NELARABINE [Concomitant]
     Active Substance: NELARABINE
     Indication: Precursor T-lymphoblastic lymphoma/leukaemia stage III
     Dosage: 650 MILLIGRAM/SQ. METER
     Route: 042
  5. CYTOXAN [Concomitant]
     Active Substance: CYCLOPHOSPHAMIDE
     Indication: Precursor T-lymphoblastic lymphoma/leukaemia stage III
     Dosage: 1000 MILLIGRAM/SQ. METER
     Route: 042
  6. CYTOXAN [Concomitant]
     Active Substance: CYCLOPHOSPHAMIDE
     Dosage: 440 MILLIGRAM/SQ. METER
     Route: 042
  7. ETOPOSIDE [Concomitant]
     Active Substance: ETOPOSIDE
     Indication: Precursor T-lymphoblastic lymphoma/leukaemia stage III
     Dosage: 100 MILLIGRAM/SQ. METER
     Route: 042
  8. CLOFARABINE [Concomitant]
     Active Substance: CLOFARABINE
     Indication: Precursor T-lymphoblastic lymphoma/leukaemia stage III
     Dosage: 52 MILLIGRAM/SQ. METER ON DAYS 1-5 EVERY 28 DAYS
     Route: 042
  9. CYTARABINE [Concomitant]
     Active Substance: CYTARABINE
     Indication: Precursor T-lymphoblastic lymphoma/leukaemia stage III
     Dosage: 75 MILLIGRAM/SQ. METER
     Route: 042
  10. CYTARABINE [Concomitant]
     Active Substance: CYTARABINE
     Dosage: 1 GRAM PER SQUARE METRE
     Route: 042
  11. MITOXANTRONE [Concomitant]
     Active Substance: MITOXANTRONE HYDROCHLORIDE
     Indication: Precursor T-lymphoblastic lymphoma/leukaemia stage III
     Dosage: 12 MILLIGRAM/SQ. METER
     Route: 042
  12. VINCRISTINE [Concomitant]
     Active Substance: VINCRISTINE
     Indication: Chemotherapy
     Dosage: 1.5 MG/M2/DOSE ON DAYS 1, 8, 15, AND 22
     Route: 042
  13. PREDNISONE [Concomitant]
     Active Substance: PREDNISONE
     Indication: Chemotherapy
     Dosage: 30 MG/M2/DOSE BID ON DAYS 1-28
     Route: 048
  14. DAUNORUBICIN [Concomitant]
     Active Substance: DAUNORUBICIN
     Indication: Chemotherapy
     Dosage: 25 MG/M2/DOSE ON DAYS 1, 8, 15, AND 22
     Route: 042
  15. PEGASPARGASE [Concomitant]
     Active Substance: PEGASPARGASE
     Indication: Chemotherapy
     Dosage: 2500 INTERNATIONAL UNITS/M2/DOSE?1 DOSE ON DAY 4
     Route: 042
  16. DEXAMETHASONE [Concomitant]
     Active Substance: DEXAMETHASONE
     Indication: Chemotherapy
     Dosage: UNK
     Route: 065
  17. DECITABINE [Concomitant]
     Active Substance: DECITABINE
     Indication: Product used for unknown indication
     Dosage: 20 MG/M2 ON DAYS 1-10, 1 CYCLE
     Route: 042
  18. VENETOCLAX [Concomitant]
     Active Substance: VENETOCLAX
     Indication: Product used for unknown indication
     Dosage: 100 MILLIGRAM TABLETS ON DAYS 1-21
     Route: 048

REACTIONS (2)
  - Myelosuppression [Unknown]
  - Drug ineffective [Unknown]
